FAERS Safety Report 6645812-9 (Version None)
Quarter: 2010Q1

REPORT INFORMATION
  Report Type: 
  Country: None (occurrence: None)
  Receive Date: 20100323
  Receipt Date: 20100316
  Transmission Date: 20100710
  Serious: Yes (Death)
  Sender: FDA-Public Use
  Company Number: JP-WYE-H14146410

PATIENT
  Age: 84 Year
  Sex: Female

DRUGS (1)
  1. ZOSYN [Suspect]
     Indication: DRUG USE FOR UNKNOWN INDICATION
     Route: 042
     Dates: start: 20100223, end: 20100302

REACTIONS (1)
  - HEPATIC FAILURE [None]
